FAERS Safety Report 7364760-2 (Version None)
Quarter: 2011Q1

REPORT INFORMATION
  Report Type: 
  Country: None (occurrence: None)
  Receive Date: 20110316
  Receipt Date: 20110316
  Transmission Date: 20110831
  Serious: Yes (Hospitalization)
  Sender: FDA-Public Use
  Company Number: None

PATIENT
  Age: 62 Year
  Sex: Female

DRUGS (1)
  1. MICARDIS [Suspect]
     Indication: HYPERTENSION
     Dosage: TAKE 1 TABLET BY  MOUTH DAILY
     Route: 048

REACTIONS (10)
  - BLOOD BILIRUBIN INCREASED [None]
  - NAUSEA [None]
  - FATIGUE [None]
  - CONSTIPATION [None]
  - IMPAIRED WORK ABILITY [None]
  - URINARY RETENTION [None]
  - OEDEMA PERIPHERAL [None]
  - JOINT SWELLING [None]
  - WEIGHT DECREASED [None]
  - FAECES DISCOLOURED [None]
